FAERS Safety Report 9697565 (Version 1)
Quarter: 2013Q4

REPORT INFORMATION
  Report Type: Spontaneous
  Country: JP (occurrence: JP)
  Receive Date: 20131120
  Receipt Date: 20131120
  Transmission Date: 20140711
  Serious: Yes (Other)
  Sender: FDA-Public Use
  Company Number: JP-ASTELLAS-2013JP012621

PATIENT
  Sex: Male

DRUGS (3)
  1. VESICARE [Suspect]
     Dosage: 2.5 MG, BID
     Route: 048
  2. PRONON [Concomitant]
     Indication: ARRHYTHMIA
     Route: 048
  3. LAXOBERON [Concomitant]
     Route: 048

REACTIONS (4)
  - Intentional drug misuse [Unknown]
  - Ventricular extrasystoles [Unknown]
  - Constipation [Unknown]
  - Dry mouth [Unknown]
